FAERS Safety Report 5499309-2 (Version None)
Quarter: 2007Q4

REPORT INFORMATION
  Report Type: 
  Country: None (occurrence: None)
  Receive Date: 20071026
  Receipt Date: 20071025
  Transmission Date: 20080405
  Serious: Yes (Disabling)
  Sender: FDA-Public Use
  Company Number: A0689784A

PATIENT
  Age: 24 Year
  Sex: Female

DRUGS (7)
  1. ALLI [Suspect]
     Route: 048
     Dates: start: 20071010
  2. LEVONORGESTREL AND ETHINYL ESTRADIOL [Concomitant]
  3. LORATADINE [Concomitant]
  4. LEXAPRO [Concomitant]
  5. AMBIEN [Concomitant]
  6. VALTREX [Concomitant]
  7. ONE A DAY [Concomitant]

REACTIONS (4)
  - DIZZINESS [None]
  - FLATULENCE [None]
  - LOSS OF CONSCIOUSNESS [None]
  - VOMITING [None]
